FAERS Safety Report 9644205 (Version 1)
Quarter: 2013Q4

REPORT INFORMATION
  Report Type: Spontaneous
  Country: US (occurrence: US)
  Receive Date: 20131024
  Receipt Date: 20131024
  Transmission Date: 20140711
  Serious: Yes (Other)
  Sender: FDA-Public Use
  Company Number: US-TEVA-440156USA

PATIENT
  Sex: Male

DRUGS (1)
  1. FENTANYL [Suspect]

REACTIONS (1)
  - Diabetes mellitus [Recovered/Resolved]
